FAERS Safety Report 8932814 (Version 1)
Quarter: 2012Q4

REPORT INFORMATION
  Report Type: 
  Country: US (occurrence: US)
  Receive Date: 20121129
  Receipt Date: 20121129
  Transmission Date: 20130627
  Serious: Yes (Hospitalization, Other)
  Sender: FDA-Public Use
  Company Number: US-ELI_LILLY_AND_COMPANY-US201211006257

PATIENT
  Age: 72 None
  Sex: Male

DRUGS (3)
  1. HUMALOG 25% LISPRO, 75% NPL [Suspect]
     Indication: TYPE 2 DIABETES MELLITUS
     Dosage: 42 u, each morning
  2. HUMALOG 25% LISPRO, 75% NPL [Suspect]
     Dosage: 40 u, each evening
  3. BYETTA [Concomitant]

REACTIONS (3)
  - Coronary artery occlusion [Recovered/Resolved]
  - Blood glucose increased [Not Recovered/Not Resolved]
  - Knee arthroplasty [Recovered/Resolved]
